FAERS Safety Report 15002250 (Version 1)
Quarter: 2018Q2

REPORT INFORMATION
  Report Type: Spontaneous
  Country: US (occurrence: US)
  Receive Date: 20180612
  Receipt Date: 20180612
  Transmission Date: 20180711
  Serious: No
  Sender: FDA-Public Use
  Company Number: US-BAYER-2018-111916

PATIENT
  Age: 41 Year
  Sex: Female

DRUGS (1)
  1. GADAVIST [Suspect]
     Active Substance: GADOBUTROL
     Indication: NUCLEAR MAGNETIC RESONANCE IMAGING ABDOMINAL
     Dosage: 8 ML, ONCE
     Route: 042
     Dates: start: 20180611, end: 20180611

REACTIONS (4)
  - Pruritus [None]
  - Off label use [None]
  - Product use in unapproved indication [None]
  - Urticaria [None]

NARRATIVE: CASE EVENT DATE: 201806
